FAERS Safety Report 5025280-3 (Version None)
Quarter: 2006Q2

REPORT INFORMATION
  Report Type: 
  Country: None (occurrence: None)
  Receive Date: 20060426
  Receipt Date: 20060201
  Transmission Date: 20061013
  Serious: Yes (Other)
  Sender: FDA-Public Use
  Company Number: 2005163311

PATIENT
  Age: 65 Year
  Sex: Male
  Weight: 61.2356 kg

DRUGS (1)
  1. LYRICA [Suspect]

REACTIONS (1)
  - PRURITUS [None]
